FAERS Safety Report 23280471 (Version 2)
Quarter: 2024Q2

REPORT INFORMATION
  Report Type: Report from Study
  Country: CA (occurrence: CA)
  Receive Date: 20231211
  Receipt Date: 20240628
  Transmission Date: 20240715
  Serious: No
  Sender: FDA-Public Use
  Company Number: CA-ROCHE-3190379

PATIENT
  Sex: Female

DRUGS (1)
  1. OCREVUS [Suspect]
     Active Substance: OCRELIZUMAB
     Indication: Primary progressive multiple sclerosis
     Dosage: 300 MG AT DAY 0 AND 14, THEN 600 MG EVERY 6 MONTH
     Route: 042
     Dates: start: 20211201

REACTIONS (11)
  - Gait disturbance [Not Recovered/Not Resolved]
  - Constipation [Not Recovered/Not Resolved]
  - Tooth disorder [Unknown]
  - Toothache [Recovered/Resolved with Sequelae]
  - Malaise [Recovered/Resolved]
  - Abdominal distension [Recovered/Resolved]
  - Dyspepsia [Unknown]
  - Memory impairment [Not Recovered/Not Resolved]
  - Feeling abnormal [Unknown]
  - Oral herpes [Recovering/Resolving]
  - Balance disorder [Not Recovered/Not Resolved]
